FAERS Safety Report 10205661 (Version 2)
Quarter: 2014Q2

REPORT INFORMATION
  Report Type: Spontaneous
  Country: IT (occurrence: IT)
  Receive Date: 20140529
  Receipt Date: 20140529
  Transmission Date: 20141212
  Serious: Yes (Hospitalization)
  Sender: FDA-Public Use
  Company Number: PHHY2014IT046934

PATIENT
  Age: 89 Year
  Sex: Male

DRUGS (2)
  1. CARVEDILOL SANDOZ [Suspect]
     Indication: INTENTIONAL SELF-INJURY
     Dosage: 87.5 MG, ONCE/SINGLE
     Route: 048
     Dates: start: 20130203, end: 20130203
  2. ENAPREN [Suspect]
     Indication: INTENTIONAL SELF-INJURY
     Dosage: 200 MG, QD
     Route: 048
     Dates: start: 20130203, end: 20130203

REACTIONS (2)
  - Loss of consciousness [Recovered/Resolved]
  - Drug abuse [Recovered/Resolved]
